FAERS Safety Report 15517321 (Version 1)
Quarter: 2018Q4

REPORT INFORMATION
  Report Type: Spontaneous
  Country: HR (occurrence: HR)
  Receive Date: 20181017
  Receipt Date: 20181017
  Transmission Date: 20190205
  Serious: Yes (Other)
  Sender: FDA-Public Use
  Company Number: HR-AMGEN-HRVSP2018143608

PATIENT
  Age: 63 Year
  Sex: Female
  Weight: 75 kg

DRUGS (23)
  1. PANITUMUMAB [Suspect]
     Active Substance: PANITUMUMAB
     Indication: COLORECTAL CANCER METASTATIC
     Dosage: 450 MG, UNK
     Route: 065
     Dates: start: 20170411
  2. PANITUMUMAB [Suspect]
     Active Substance: PANITUMUMAB
     Indication: METASTASES TO LIVER
  3. PANITUMUMAB [Suspect]
     Active Substance: PANITUMUMAB
     Indication: METASTASES TO LUNG
  4. 5-FU [Concomitant]
     Active Substance: FLUOROURACIL
     Indication: COLORECTAL CANCER METASTATIC
     Dosage: UNK
     Dates: start: 201408
  5. IRINOTECAN [Concomitant]
     Active Substance: IRINOTECAN
     Indication: METASTASES TO LYMPH NODES
  6. IRINOTECAN [Concomitant]
     Active Substance: IRINOTECAN
     Indication: METASTASES TO LUNG
  7. LEUCOVORIN. [Concomitant]
     Active Substance: LEUCOVORIN
     Indication: COLORECTAL CANCER METASTATIC
     Dosage: UNK
     Dates: start: 201408
  8. 5-FU [Concomitant]
     Active Substance: FLUOROURACIL
     Indication: ADENOCARCINOMA OF COLON
  9. IRINOTECAN [Concomitant]
     Active Substance: IRINOTECAN
     Indication: COLORECTAL CANCER METASTATIC
     Dosage: UNK
     Dates: start: 20170411, end: 201801
  10. BISOPROL [Concomitant]
     Active Substance: BISOPROLOL FUMARATE
     Dosage: 1.25 MG, UNK (1X1)
  11. 5-FU [Concomitant]
     Active Substance: FLUOROURACIL
     Indication: METASTASES TO LIVER
  12. LEUCOVORIN. [Concomitant]
     Active Substance: LEUCOVORIN
     Indication: METASTASES TO LUNG
  13. ATORVASTATIN [Concomitant]
     Active Substance: ATORVASTATIN
     Dosage: 20 MG, UNK (1X1)
  14. PANITUMUMAB [Suspect]
     Active Substance: PANITUMUMAB
     Indication: METASTASES TO LYMPH NODES
  15. LEUCOVORIN. [Concomitant]
     Active Substance: LEUCOVORIN
     Indication: METASTASES TO LYMPH NODES
  16. 5-FU [Concomitant]
     Active Substance: FLUOROURACIL
     Indication: METASTASES TO LYMPH NODES
  17. IRINOTECAN [Concomitant]
     Active Substance: IRINOTECAN
     Indication: METASTASES TO LIVER
  18. PANITUMUMAB [Suspect]
     Active Substance: PANITUMUMAB
     Indication: ADENOCARCINOMA OF COLON
  19. LEUCOVORIN. [Concomitant]
     Active Substance: LEUCOVORIN
     Indication: METASTASES TO LIVER
  20. 5-FU [Concomitant]
     Active Substance: FLUOROURACIL
     Indication: METASTASES TO LUNG
  21. LEUCOVORIN. [Concomitant]
     Active Substance: LEUCOVORIN
     Indication: ADENOCARCINOMA OF COLON
  22. IRINOTECAN [Concomitant]
     Active Substance: IRINOTECAN
     Indication: ADENOCARCINOMA OF COLON
  23. ZOFENOPRIL [Concomitant]
     Active Substance: ZOFENOPRIL
     Dosage: UNK

REACTIONS (9)
  - Granulocytopenia [Unknown]
  - Vomiting [Recovered/Resolved]
  - Leukopenia [Unknown]
  - Nausea [Recovered/Resolved]
  - Dermatitis acneiform [Unknown]
  - Xerosis [Unknown]
  - Fatigue [Unknown]
  - Colorectal cancer metastatic [Unknown]
  - Hypokalaemia [Unknown]

NARRATIVE: CASE EVENT DATE: 2017
